FAERS Safety Report 4299621-9 (Version None)
Quarter: 2004Q1

REPORT INFORMATION
  Report Type: 
  Country: None (occurrence: None)
  Receive Date: 20040217
  Receipt Date: 20040211
  Transmission Date: 20041129
  Serious: Yes (Death)
  Sender: FDA-Public Use
  Company Number: 2004CG00288

PATIENT
  Age: 78 Year
  Sex: Male

DRUGS (10)
  1. TENORMIN [Suspect]
     Dates: end: 20030720
  2. AMLOR [Suspect]
     Dates: end: 20030720
  3. ZOCOR [Suspect]
     Dosage: 5 MG QD PO
     Route: 048
     Dates: start: 20000615, end: 20030920
  4. CARDENSIEL [Suspect]
     Dosage: 1 DF QD PO
     Route: 048
     Dates: start: 20030720, end: 20030920
  5. ZESTRIL [Concomitant]
  6. MOPRAL [Concomitant]
  7. LASILIX [Concomitant]
  8. ADALAT [Concomitant]
  9. SOLUPRED [Concomitant]
  10. FLIXOTIDE [Concomitant]

REACTIONS (2)
  - PNEUMONITIS [None]
  - PULMONARY FIBROSIS [None]
